FAERS Safety Report 15792580 (Version 7)
Quarter: 2021Q1

REPORT INFORMATION
  Report Type: Other
  Country: DE (occurrence: DE)
  Receive Date: 20190107
  Receipt Date: 20210305
  Transmission Date: 20210419
  Serious: Yes (Hospitalization, Other)
  Sender: FDA-Public Use
  Company Number: DE-ROCHE-2141653

PATIENT
  Age: 62 Year
  Sex: Female

DRUGS (15)
  1. OCREVUS [Suspect]
     Active Substance: OCRELIZUMAB
     Indication: SECONDARY PROGRESSIVE MULTIPLE SCLEROSIS
     Dosage: SECOND INFUSION: 07/MAY/2018
     Route: 042
     Dates: start: 20180423
  2. OCREVUS [Suspect]
     Active Substance: OCRELIZUMAB
     Route: 042
     Dates: start: 20181105, end: 20191031
  3. METOPROLOL. [Concomitant]
     Active Substance: METOPROLOL
  4. UTIPRO PLUS [Concomitant]
  5. AMLODIPIN [Concomitant]
     Active Substance: AMLODIPINE BESYLATE
  6. ASPIRIN. [Concomitant]
     Active Substance: ASPIRIN
  7. PRAMIPEXOL [Concomitant]
     Active Substance: PRAMIPEXOLE
     Dosage: 0.35 UNIT NOT REPORTED?3?3?3
  8. PANTOPRAZOL [Concomitant]
     Active Substance: PANTOPRAZOLE SODIUM
  9. VOMACUR [Concomitant]
     Active Substance: DIMENHYDRINATE
  10. DRONABINOL. [Concomitant]
     Active Substance: DRONABINOL
     Dosage: 10?0?10?DROPS
  11. DEKRISTOL [Concomitant]
     Active Substance: CHOLECALCIFEROL
  12. SATIVEX [Concomitant]
     Active Substance: NABIXIMOLS
     Dosage: SPRAY
  13. IBUPROFEN. [Concomitant]
     Active Substance: IBUPROFEN
  14. SIMVASTATIN. [Concomitant]
     Active Substance: SIMVASTATIN
  15. GABAPENTIN. [Concomitant]
     Active Substance: GABAPENTIN
     Dosage: 1?1?3

REACTIONS (13)
  - Intentional product use issue [Unknown]
  - Dysstasia [Not Recovered/Not Resolved]
  - Pain in extremity [Recovered/Resolved]
  - Fatigue [Recovered/Resolved]
  - Mobility decreased [Unknown]
  - Cystitis bacterial [Recovered/Resolved]
  - Gait disturbance [Not Recovered/Not Resolved]
  - Drug ineffective [Unknown]
  - Off label use [Unknown]
  - Asthenia [Unknown]
  - Urinary tract infection [Recovered/Resolved]
  - Muscle spasticity [Recovered/Resolved]
  - Muscle spasticity [Recovering/Resolving]

NARRATIVE: CASE EVENT DATE: 20180423
